FAERS Safety Report 6895182-6 (Version None)
Quarter: 2010Q3

REPORT INFORMATION
  Report Type: 
  Country: None (occurrence: None)
  Receive Date: 20100802
  Receipt Date: 20100720
  Transmission Date: 20110219
  Serious: Yes (Hospitalization, Other)
  Sender: FDA-Public Use
  Company Number: PHHY2010US38754

PATIENT
  Sex: Female

DRUGS (5)
  1. ZOMETA [Suspect]
     Indication: METASTASES TO BONE
     Dosage: 4 MG IV OVER 30 MINS (4 MG /5 ML)
     Dates: start: 20100224, end: 20100224
  2. METOPROLOL [Concomitant]
     Indication: BLOOD PRESSURE
     Dosage: 25 MG, QD
  3. AMLODIPINE [Concomitant]
     Dosage: 5 MG, QD
  4. CISPLATIN [Concomitant]
     Dosage: 16 CYCLES
     Dates: start: 20100217, end: 20100312
  5. ATIVAN [Concomitant]
     Indication: ANXIETY
     Dosage: 2 MG, PRN

REACTIONS (8)
  - BLOOD CALCIUM DECREASED [None]
  - BLOOD MAGNESIUM DECREASED [None]
  - CONCOMITANT DISEASE PROGRESSION [None]
  - DIZZINESS [None]
  - HYPOCALCAEMIA [None]
  - MYALGIA [None]
  - TETANY [None]
  - VITAMIN D DEFICIENCY [None]
